FAERS Safety Report 15425621 (Version 9)
Quarter: 2020Q4

REPORT INFORMATION
  Report Type: Spontaneous
  Country: CA (occurrence: CA)
  Receive Date: 20180925
  Receipt Date: 20201013
  Transmission Date: 20210113
  Serious: Yes (Other)
  Sender: FDA-Public Use
  Company Number: CA-PFIZER INC-2018152333

PATIENT
  Age: 63 Year
  Sex: Male

DRUGS (5)
  1. XELJANZ [Suspect]
     Active Substance: TOFACITINIB CITRATE
     Indication: RHEUMATOID ARTHRITIS
     Dosage: 5 MG, 1X/DAY
     Route: 048
     Dates: start: 20180318, end: 20180906
  2. XELJANZ [Suspect]
     Active Substance: TOFACITINIB CITRATE
     Dosage: 5 MG, 2X/DAY
     Route: 048
     Dates: start: 20181004
  3. HYDROXYCHLOROQUINE [Concomitant]
     Active Substance: HYDROXYCHLOROQUINE
     Indication: RHEUMATOID ARTHRITIS
     Dosage: 400 MG, DAILY
     Route: 048
     Dates: start: 20141001
  4. SULFASALAZINE. [Concomitant]
     Active Substance: SULFASALAZINE
     Indication: RHEUMATOID ARTHRITIS
     Dosage: 1000 MG, 2X/DAY
     Route: 048
     Dates: start: 20140626
  5. CELEBREX [Concomitant]
     Active Substance: CELECOXIB
     Indication: PAIN
     Dosage: UNK, AS NEEDED

REACTIONS (6)
  - Gait disturbance [Unknown]
  - Drug ineffective [Unknown]
  - Umbilical hernia [Recovering/Resolving]
  - Chondropathy [Unknown]
  - Joint dislocation [Unknown]
  - Postoperative wound complication [Recovering/Resolving]

NARRATIVE: CASE EVENT DATE: 201809
